FAERS Safety Report 6328324-1 (Version None)
Quarter: 2009Q3

REPORT INFORMATION
  Report Type: 
  Country: None (occurrence: None)
  Receive Date: 20090825
  Receipt Date: 20090420
  Transmission Date: 20100115
  Serious: No
  Sender: FDA-Public Use
  Company Number: US-ABBOTT-09P-163-0569303-00

PATIENT

DRUGS (4)
  1. SYNTHROID [Suspect]
     Indication: DRUG USE FOR UNKNOWN INDICATION
  2. ZYRTEC [Concomitant]
     Indication: DRUG USE FOR UNKNOWN INDICATION
  3. BENADRYL [Concomitant]
     Indication: HYPERSENSITIVITY
     Route: 048
  4. CLARITIN [Concomitant]
     Indication: HYPERSENSITIVITY

REACTIONS (1)
  - ABNORMAL BEHAVIOUR [None]
